FAERS Safety Report 8295548-6 (Version None)
Quarter: 2012Q2

REPORT INFORMATION
  Report Type: 
  Country: None (occurrence: None)
  Receive Date: 20120413
  Receipt Date: 20120328
  Transmission Date: 20120825
  Serious: Yes (Other)
  Sender: FDA-Public Use
  Company Number: FK201200941

PATIENT
  Age: 43 Year
  Sex: Male

DRUGS (2)
  1. LEUCOVORIN CALCIUM [Concomitant]
  2. FLUOROURACIL [Suspect]
     Indication: COLON CANCER

REACTIONS (3)
  - ELECTROCARDIOGRAM ST SEGMENT ELEVATION [None]
  - ELECTROCARDIOGRAM T WAVE PEAKED [None]
  - ANGINA PECTORIS [None]
